FAERS Safety Report 8350282-9 (Version None)
Quarter: 2012Q2

REPORT INFORMATION
  Report Type: 
  Country: None (occurrence: None)
  Receive Date: 20120510
  Receipt Date: 20120503
  Transmission Date: 20120825
  Serious: Yes (Other)
  Sender: FDA-Public Use
  Company Number: US-BAYER-2012-032832

PATIENT
  Age: 34 Year
  Sex: Female
  Weight: 66.667 kg

DRUGS (5)
  1. YAZ [Suspect]
     Indication: MENSTRUATION IRREGULAR
  2. DIFLUCAN [Concomitant]
     Indication: VAGINAL INFECTION
     Dosage: 150 MG NOW AND REPEAT IN 72 HOURS
     Dates: start: 20090323
  3. A + D OINTMENT [Concomitant]
     Indication: VAGINAL INFECTION
     Dosage: UNK
     Dates: start: 20090323
  4. MONISTAT [Concomitant]
     Indication: VAGINAL INFECTION
     Dosage: UNK
     Dates: start: 20090323
  5. YAZ [Suspect]
     Indication: CONTRACEPTION
     Dosage: UNK
     Dates: start: 20080115, end: 20090330

REACTIONS (5)
  - INJURY [None]
  - PAIN [None]
  - POST THROMBOTIC SYNDROME [None]
  - PAIN IN EXTREMITY [None]
  - THROMBOPHLEBITIS SUPERFICIAL [None]
